FAERS Safety Report 15691381 (Version 1)
Quarter: 2018Q4

REPORT INFORMATION
  Report Type: Spontaneous
  Country: US (occurrence: US)
  Receive Date: 20181205
  Receipt Date: 20181205
  Transmission Date: 20190205
  Serious: No
  Sender: FDA-Public Use
  Company Number: US-SA-2018SA332719

PATIENT
  Age: 48 Year
  Sex: Female
  Weight: 108 kg

DRUGS (1)
  1. LUMIZYME [Suspect]
     Active Substance: ALGLUCOSIDASE ALFA
     Indication: GLYCOGEN STORAGE DISEASE TYPE II
     Dosage: 20 MG/KG, QOW
     Route: 041

REACTIONS (7)
  - Heart rate increased [Unknown]
  - Nausea [Unknown]
  - Blood pressure increased [Unknown]
  - Headache [Unknown]
  - Blood glucose abnormal [Unknown]
  - Abdominal pain [Unknown]
  - Dizziness [Unknown]

NARRATIVE: CASE EVENT DATE: 20181128
